FAERS Safety Report 7124192-9 (Version None)
Quarter: 2010Q4

REPORT INFORMATION
  Report Type: 
  Country: None (occurrence: None)
  Receive Date: 20101126
  Receipt Date: 20101123
  Transmission Date: 20110411
  Serious: Yes (Hospitalization)
  Sender: FDA-Public Use
  Company Number: IT-PFIZER INC-2008063869

PATIENT
  Age: 84 Year
  Sex: Male
  Weight: 85 kg

DRUGS (11)
  1. BLINDED *NO SUBJECT DRUG [Suspect]
     Indication: CARDIAC FAILURE CHRONIC
     Dosage: UNK
     Route: 048
     Dates: start: 20070626
  2. PLACEBO [Suspect]
     Indication: CARDIAC FAILURE CHRONIC
     Dosage: UNK
     Route: 048
     Dates: start: 20070626
  3. EPLERENONE [Suspect]
     Indication: CARDIAC FAILURE CHRONIC
     Dosage: UNK
     Route: 048
     Dates: start: 20070626
  4. DILATREND [Concomitant]
     Route: 048
     Dates: start: 20070601
  5. LASIX [Concomitant]
  6. ALLOPURINOL [Concomitant]
     Route: 048
     Dates: start: 20060501
  7. ALLOPURINOL [Concomitant]
     Route: 048
     Dates: start: 20080410
  8. PLAVIX [Concomitant]
     Route: 048
     Dates: start: 20070522
  9. WARFARIN SODIUM [Concomitant]
     Route: 048
     Dates: start: 20080501, end: 20080512
  10. WARFARIN SODIUM [Concomitant]
     Route: 048
     Dates: start: 20080521
  11. ENAPREN [Concomitant]
     Route: 048
     Dates: start: 20080410

REACTIONS (1)
  - INGUINAL HERNIA [None]
